FAERS Safety Report 6538068-9 (Version None)
Quarter: 2010Q1

REPORT INFORMATION
  Report Type: 
  Country: None (occurrence: None)
  Receive Date: 20100114
  Receipt Date: 20100112
  Transmission Date: 20100710
  Serious: Yes (Hospitalization, Other)
  Sender: FDA-Public Use
  Company Number: DE-AMGEN-UK376387

PATIENT
  Sex: Female
  Weight: 65 kg

DRUGS (6)
  1. NPLATE [Suspect]
     Indication: IDIOPATHIC THROMBOCYTOPENIC PURPURA
     Route: 058
     Dates: start: 20090508, end: 20091030
  2. PREDNISONE [Concomitant]
     Route: 048
  3. FRAGMIN [Concomitant]
     Route: 058
  4. FENTANYL [Concomitant]
     Route: 061
  5. PANTOPRAZOLE [Concomitant]
     Route: 048
  6. TORSEMIDE [Concomitant]
     Route: 048

REACTIONS (5)
  - INFECTION [None]
  - PLATELET COUNT INCREASED [None]
  - PNEUMONIA [None]
  - PULMONARY EMBOLISM [None]
  - THROMBOSIS [None]
